FAERS Safety Report 4753730-6 (Version None)
Quarter: 2005Q3

REPORT INFORMATION
  Report Type: 
  Country: None (occurrence: None)
  Receive Date: 20050825
  Receipt Date: 20050816
  Transmission Date: 20060218
  Serious: Yes (Death, Life-Threatening, Hospitalization)
  Sender: FDA-Public Use
  Company Number: CLOF-10073

PATIENT
  Age: 78 Year
  Sex: Male

DRUGS (10)
  1. CLOFARABINE [Suspect]
     Indication: ACUTE MYELOID LEUKAEMIA
     Dosage: 51 MG QD X 5 IV
     Route: 042
     Dates: start: 20040407, end: 20040411
  2. MODURET [Concomitant]
  3. AMLODIINE [Concomitant]
  4. BONEFOS [Concomitant]
  5. NITRAZEPAM [Concomitant]
  6. ONDANSETRON [Concomitant]
  7. SLOW-K [Concomitant]
  8. CO-TRIMOXAZOLE [Concomitant]
  9. CIPROFLOXACIN [Concomitant]
  10. ALLOPURINOL [Concomitant]

REACTIONS (14)
  - ANAPHYLACTIC SHOCK [None]
  - BLOOD CREATINE INCREASED [None]
  - BLOOD UREA INCREASED [None]
  - CARDIAC ARREST [None]
  - DEHYDRATION [None]
  - FLUID OVERLOAD [None]
  - HAEMATURIA [None]
  - LOSS OF CONSCIOUSNESS [None]
  - NEUTROPHIL COUNT INCREASED [None]
  - PLATELET DISORDER [None]
  - PYREXIA [None]
  - RASH [None]
  - TRANSFUSION REACTION [None]
  - VENOUS PRESSURE JUGULAR INCREASED [None]
